FAERS Safety Report 9693186 (Version 1)
Quarter: 2013Q4

REPORT INFORMATION
  Report Type: Spontaneous
  Country: FR (occurrence: FR)
  Receive Date: 20131118
  Receipt Date: 20131118
  Transmission Date: 20140711
  Serious: Yes (Hospitalization)
  Sender: FDA-Public Use
  Company Number: FR-ABBVIE-13P-056-1169956-00

PATIENT
  Age: 83 Year
  Sex: Male

DRUGS (8)
  1. VALPROATE SODIUM [Suspect]
     Indication: ABNORMAL BEHAVIOUR
     Dosage: 750 MILLIGRAM(S); 3 TIMES A DAY, EXTENDED RELEASE
     Route: 048
     Dates: start: 201109
  2. LOXAPAC [Suspect]
     Indication: ABNORMAL BEHAVIOUR
     Route: 048
     Dates: end: 20130726
  3. SERESTA [Suspect]
     Indication: ABNORMAL BEHAVIOUR
     Route: 048
  4. CITALOPRAM [Suspect]
     Indication: PRODUCT USED FOR UNKNOWN INDICATION
     Route: 048
  5. HEMIGOXINE NATIVELLE [Concomitant]
     Indication: PRODUCT USED FOR UNKNOWN INDICATION
  6. TEMERIT [Concomitant]
     Indication: PRODUCT USED FOR UNKNOWN INDICATION
  7. OPHTHALMOLOGICALS [Concomitant]
     Indication: PRODUCT USED FOR UNKNOWN INDICATION
  8. PREVISCAN [Concomitant]
     Indication: PRODUCT USED FOR UNKNOWN INDICATION

REACTIONS (3)
  - Disturbance in attention [Recovered/Resolved]
  - Somnolence [Recovered/Resolved]
  - Ammonia increased [Recovered/Resolved]
